FAERS Safety Report 18630068 (Version 1)
Quarter: 2020Q4

REPORT INFORMATION
  Report Type: Spontaneous
  Country: US (occurrence: US)
  Receive Date: 20201217
  Receipt Date: 20201217
  Transmission Date: 20210114
  Serious: No
  Sender: FDA-Public Use
  Company Number: US-PFIZER INC-2020494937

PATIENT
  Age: 71 Year
  Sex: Female

DRUGS (1)
  1. IBRANCE [Suspect]
     Active Substance: PALBOCICLIB
     Indication: NEOPLASM MALIGNANT
     Dosage: 100 MG
     Dates: start: 20181213

REACTIONS (6)
  - Nausea [Unknown]
  - Epistaxis [Unknown]
  - Vomiting [Unknown]
  - Alopecia [Unknown]
  - Dyspnoea [Unknown]
  - Fatigue [Unknown]
